FAERS Safety Report 17822975 (Version 1)
Quarter: 2020Q2

REPORT INFORMATION
  Report Type: Spontaneous
  Country: US (occurrence: US)
  Receive Date: 20200522
  Receipt Date: 20200522
  Transmission Date: 20200714
  Serious: Yes (Other)
  Sender: FDA-Public Use
  Company Number: None

PATIENT
  Age: 76 Year
  Sex: Male
  Weight: 90 kg

DRUGS (8)
  1. ASPIRIN. [Concomitant]
     Active Substance: ASPIRIN
  2. MEDROL [Concomitant]
     Active Substance: METHYLPREDNISOLONE
  3. ATENOLOL. [Concomitant]
     Active Substance: ATENOLOL
  4. MAGNESIUM [Concomitant]
     Active Substance: MAGNESIUM
  5. MELOXICAM. [Concomitant]
     Active Substance: MELOXICAM
  6. ELIGARD [Concomitant]
     Active Substance: LEUPROLIDE ACETATE
  7. YONSA [Suspect]
     Active Substance: ABIRATERONE ACETATE
     Indication: PROSTATE CANCER
     Route: 048
     Dates: start: 20200420
  8. NORCO [Concomitant]
     Active Substance: ACETAMINOPHEN\HYDROCODONE BITARTRATE

REACTIONS (2)
  - Disease progression [None]
  - Hospice care [None]
